FAERS Safety Report 21619430 (Version 1)
Quarter: 2022Q4

REPORT INFORMATION
  Report Type: Spontaneous
  Country: GR (occurrence: GR)
  Receive Date: 20221121
  Receipt Date: 20221121
  Transmission Date: 20230113
  Serious: Yes (Other)
  Sender: FDA-Public Use
  Company Number: None

PATIENT
  Age: 38 Year
  Sex: Female
  Weight: 65 kg

DRUGS (4)
  1. ROSUVASTATIN [Suspect]
     Active Substance: ROSUVASTATIN
     Indication: Type IIa hyperlipidaemia
     Dosage: 20 MG
     Route: 048
     Dates: start: 20180520, end: 20220520
  2. ATORVASTATIN [Suspect]
     Active Substance: ATORVASTATIN
     Indication: Type IIa hyperlipidaemia
     Dosage: 20 MG (FROM 10 JUN 2022)
     Route: 048
     Dates: end: 20220815
  3. PITAVASTATIN [Suspect]
     Active Substance: PITAVASTATIN
     Indication: Type IIa hyperlipidaemia
     Dosage: 2 MG (15 SEP 2022)
     Route: 048
     Dates: end: 20221022
  4. PRAVASTATIN [Suspect]
     Active Substance: PRAVASTATIN
     Indication: Type IIa hyperlipidaemia
     Dosage: 20 MG (05 OCT 2022)
     Route: 048
     Dates: end: 20221010

REACTIONS (10)
  - Migraine [Recovered/Resolved]
  - Tinnitus [Recovered/Resolved]
  - Migraine [Recovered/Resolved]
  - Tinnitus [Recovered/Resolved]
  - Myalgia [Recovered/Resolved]
  - Nausea [Recovered/Resolved]
  - Myalgia [Recovered/Resolved]
  - Memory impairment [Recovered/Resolved]
  - Myalgia [Recovered/Resolved]
  - Myalgia [Recovered/Resolved]

NARRATIVE: CASE EVENT DATE: 20220520
